FAERS Safety Report 5398529-5 (Version None)
Quarter: 2007Q3

REPORT INFORMATION
  Report Type: 
  Country: None (occurrence: None)
  Receive Date: 20070726
  Receipt Date: 20060728
  Transmission Date: 20080115
  Serious: No
  Sender: FDA-Public Use
  Company Number: US-AMGEN-KDL188446

PATIENT
  Sex: Male

DRUGS (8)
  1. PROCRIT [Suspect]
     Indication: ANAEMIA
     Route: 058
     Dates: start: 20060622
  2. LISINOPRIL [Concomitant]
  3. TOPRAL [Concomitant]
  4. AVANDIA [Concomitant]
  5. GLYBURIDE [Concomitant]
  6. ACIPHEX [Concomitant]
  7. ASPIRIN [Concomitant]
     Route: 048
  8. LIPITOR [Concomitant]

REACTIONS (1)
  - INJECTION SITE PAIN [None]
